FAERS Safety Report 6296266-6 (Version None)
Quarter: 2009Q3

REPORT INFORMATION
  Report Type: 
  Country: None (occurrence: None)
  Receive Date: 20090803
  Receipt Date: 20090803
  Transmission Date: 20100115
  Serious: No
  Sender: FDA-Public Use
  Company Number: None

PATIENT
  Age: 6 Year
  Sex: Female
  Weight: 24.0406 kg

DRUGS (1)
  1. SINGULAIR [Suspect]
     Indication: COUGH
     Dosage: 10 MG 1 X DAY PO
     Route: 048
     Dates: start: 20090727, end: 20090731

REACTIONS (3)
  - AGGRESSION [None]
  - CRYING [None]
  - IRRITABILITY [None]
